FAERS Safety Report 7159690-5 (Version None)
Quarter: 2010Q4

REPORT INFORMATION
  Report Type: 
  Country: None (occurrence: None)
  Receive Date: 20101214
  Receipt Date: 20101014
  Transmission Date: 20110411
  Serious: No
  Sender: FDA-Public Use
  Company Number: US-ASTRAZENECA-2010SE48756

PATIENT
  Age: 77 Year
  Sex: Male
  Weight: 65.8 kg

DRUGS (2)
  1. CRESTOR [Suspect]
     Indication: BLOOD CHOLESTEROL INCREASED
     Route: 048
     Dates: start: 20100101, end: 20100401
  2. CRESTOR [Suspect]
     Route: 048
     Dates: start: 20100401, end: 20100601

REACTIONS (1)
  - MUSCLE SPASMS [None]
